FAERS Safety Report 7041208-9 (Version None)
Quarter: 2010Q4

REPORT INFORMATION
  Report Type: 
  Country: None (occurrence: None)
  Receive Date: 20101013
  Receipt Date: 20101009
  Transmission Date: 20110411
  Serious: Yes (Other)
  Sender: FDA-Public Use
  Company Number: DE-BRISTOL-MYERS SQUIBB COMPANY-15249261

PATIENT
  Age: 36 Year
  Sex: Male
  Weight: 78 kg

DRUGS (2)
  1. ABILIFY [Suspect]
     Dosage: ADMINISTERED 21 TABS
     Dates: start: 20100822, end: 20100822
  2. BUSCOPAN [Suspect]
     Dosage: 3 TABLETS.
     Dates: start: 20100822, end: 20100822

REACTIONS (5)
  - DIPLOPIA [None]
  - HALLUCINATION [None]
  - INTENTIONAL OVERDOSE [None]
  - SUICIDE ATTEMPT [None]
  - VISUAL IMPAIRMENT [None]
